FAERS Safety Report 19916471 (Version 2)
Quarter: 2022Q3

REPORT INFORMATION
  Report Type: Other
  Country: AU (occurrence: AU)
  Receive Date: 20211004
  Receipt Date: 20220720
  Transmission Date: 20221026
  Serious: Yes (Hospitalization)
  Sender: FDA-Public Use
  Company Number: AU-TOLMAR, INC.-21AU028700

PATIENT
  Sex: Male

DRUGS (1)
  1. ELIGARD [Suspect]
     Active Substance: LEUPROLIDE ACETATE
     Indication: Prostate cancer
     Dosage: 45 MILLIGRAM, Q 6 MONTH
     Dates: start: 20201221

REACTIONS (3)
  - Pneumonia [Recovered/Resolved]
  - Urine flow decreased [Unknown]
  - Hot flush [Unknown]
